FAERS Safety Report 6899605-8 (Version None)
Quarter: 2010Q3

REPORT INFORMATION
  Report Type: 
  Country: None (occurrence: None)
  Receive Date: 20100729
  Receipt Date: 20100714
  Transmission Date: 20110219
  Serious: Yes (Hospitalization)
  Sender: FDA-Public Use
  Company Number: A-US2009-24520

PATIENT
  Age: 68 Year
  Sex: Female

DRUGS (4)
  1. TRACLEER [Suspect]
     Indication: PULMONARY ARTERIAL HYPERTENSION
     Dosage: ORAL
     Route: 048
     Dates: start: 20090210
  2. VENTAVIS [Suspect]
     Indication: PULMONARY ARTERIAL HYPERTENSION
     Dosage: RESPIRATORY
     Route: 055
     Dates: start: 20090224
  3. REVATIO [Concomitant]
  4. TADALAFIL (TADALAFIL) [Concomitant]

REACTIONS (11)
  - COLLAPSE OF LUNG [None]
  - DIARRHOEA [None]
  - HOT FLUSH [None]
  - NASAL CONGESTION [None]
  - NIGHT SWEATS [None]
  - OEDEMA PERIPHERAL [None]
  - POST PROCEDURAL COMPLICATION [None]
  - POST PROCEDURAL INFECTION [None]
  - PRURITUS GENERALISED [None]
  - SEPSIS [None]
  - SPINAL OPERATION [None]
